FAERS Safety Report 9439692 (Version 1)
Quarter: 2013Q3

REPORT INFORMATION
  Report Type: Spontaneous
  Country: US (occurrence: US)
  Receive Date: 20130805
  Receipt Date: 20130805
  Transmission Date: 20140515
  Serious: No
  Sender: FDA-Public Use
  Company Number: US-PFIZER INC-2013226577

PATIENT
  Sex: Female

DRUGS (3)
  1. CHANTIX [Suspect]
     Indication: SMOKING CESSATION THERAPY
     Dosage: UNK
     Dates: start: 2013, end: 201307
  2. NORCO [Suspect]
     Indication: HIP FRACTURE
     Dosage: UNK
  3. NORCO [Suspect]
     Indication: UPPER LIMB FRACTURE

REACTIONS (1)
  - Therapeutic response unexpected [Unknown]
